FAERS Safety Report 24403385 (Version 1)
Quarter: 2024Q4

REPORT INFORMATION
  Report Type: Report from Study
  Country: IT (occurrence: IT)
  Receive Date: 20241007
  Receipt Date: 20241007
  Transmission Date: 20250115
  Serious: No
  Sender: ROCHE
  Company Number: IT-ROCHE-2777432

PATIENT
  Age: 45 Year
  Sex: Male

DRUGS (1)
  1. OBINUTUZUMAB [Suspect]
     Active Substance: OBINUTUZUMAB
     Indication: Follicular lymphoma
     Dosage: FREQUENCY: ON DAY 1, 8, 15 OF CYCLE 1 AN DAY 1 OF CYCLES 2-6 OR 2-8. MAINTENANCE PHASE: 1000 MG IV E
     Route: 042
     Dates: start: 20200423

REACTIONS (3)
  - Insomnia [Recovered/Resolved]
  - Splenic cyst [Recovered/Resolved]
  - Paraesthesia [Recovered/Resolved]

NARRATIVE: CASE EVENT DATE: 20200514
